FAERS Safety Report 5235874-8 (Version None)
Quarter: 2007Q1

REPORT INFORMATION
  Report Type: 
  Country: None (occurrence: None)
  Receive Date: 20061208
  Receipt Date: 20051229
  Transmission Date: 20070707
  Serious: Yes (Other)
  Sender: FDA-Public Use
  Company Number: 2005UW19504

PATIENT
  Age: 85 Year
  Sex: Female
  Weight: 44.452 kg

DRUGS (8)
  1. CRESTOR [Suspect]
     Indication: BLOOD CHOLESTEROL INCREASED
     Dosage: 5 MG T1WK PO
     Route: 048
     Dates: start: 20051201
  2. ZETIA [Concomitant]
  3. PLAVIX [Concomitant]
  4. ASPIRIN [Concomitant]
  5. NORVASC [Concomitant]
  6. TOPROL-XL [Concomitant]
  7. MULTI-VITAMINS [Concomitant]
  8. HYDROXYUREA [Concomitant]

REACTIONS (2)
  - CHEILITIS [None]
  - LIP DRY [None]
